FAERS Safety Report 19396075 (Version 2)
Quarter: 2021Q2

REPORT INFORMATION
  Report Type: Spontaneous
  Country: US (occurrence: US)
  Receive Date: 20210610
  Receipt Date: 20210615
  Transmission Date: 20210717
  Serious: No
  Sender: FDA-Public Use
  Company Number: US-AMGEN-USASP2021086680

PATIENT
  Age: 74 Year
  Sex: Female

DRUGS (1)
  1. PROLIA [Suspect]
     Active Substance: DENOSUMAB
     Indication: OSTEOPOROSIS POSTMENOPAUSAL
     Dosage: 60 MILLIGRAM, Q6MO
     Route: 065
     Dates: start: 2017

REACTIONS (5)
  - Tooth extraction [Unknown]
  - Tooth disorder [Not Recovered/Not Resolved]
  - Pain in jaw [Unknown]
  - Musculoskeletal discomfort [Unknown]
  - Eczema [Unknown]

NARRATIVE: CASE EVENT DATE: 20210427
